FAERS Safety Report 5261346-0 (Version None)
Quarter: 2007Q1

REPORT INFORMATION
  Report Type: 
  Country: None (occurrence: None)
  Receive Date: 20070307
  Receipt Date: 20070221
  Transmission Date: 20070707
  Serious: Yes (Other)
  Sender: FDA-Public Use
  Company Number: 230046M07USA

PATIENT
  Age: 60 Year
  Sex: Female

DRUGS (4)
  1. REBIF [Suspect]
     Indication: MULTIPLE SCLEROSIS
     Dosage: SEE IMAGE
     Route: 058
     Dates: start: 20051019, end: 20060701
  2. MAXZIDE [Concomitant]
  3. BACLOFEN [Concomitant]
  4. ADVAIR (SERETIDE) [Concomitant]

REACTIONS (1)
  - CREST SYNDROME [None]
